FAERS Safety Report 5266587-4 (Version None)
Quarter: 2007Q1

REPORT INFORMATION
  Report Type: 
  Country: None (occurrence: None)
  Receive Date: 20070315
  Receipt Date: 20070305
  Transmission Date: 20070707
  Serious: Yes (Other)
  Sender: FDA-Public Use
  Company Number: PFIZER INC-2007017034

PATIENT

DRUGS (1)
  1. LIPITOR [Suspect]

REACTIONS (5)
  - AMYOTROPHIC LATERAL SCLEROSIS [None]
  - DYSARTHRIA [None]
  - MUSCULAR WEAKNESS [None]
  - SALIVARY HYPERSECRETION [None]
  - TONGUE DISORDER [None]
